FAERS Safety Report 18088869 (Version 2)
Quarter: 2020Q3

REPORT INFORMATION
  Report Type: Report from Study
  Country: AU (occurrence: AU)
  Receive Date: 20200729
  Receipt Date: 20200817
  Transmission Date: 20201103
  Serious: Yes (Hospitalization)
  Sender: FDA-Public Use
  Company Number: NVSC2020AU175248

PATIENT
  Age: 36 Year
  Sex: Female

DRUGS (1)
  1. COSENTYX [Suspect]
     Active Substance: SECUKINUMAB
     Indication: PSORIATIC ARTHROPATHY
     Dosage: 300 MG, QW
     Route: 058
     Dates: start: 20200527

REACTIONS (8)
  - Fatigue [Unknown]
  - Ulcer [Unknown]
  - Sinusitis [Unknown]
  - Headache [Unknown]
  - Agitation [Unknown]
  - Feeling abnormal [Unknown]
  - Polyp [Unknown]
  - Mental disorder [Unknown]

NARRATIVE: CASE EVENT DATE: 20200626
